FAERS Safety Report 12886811 (Version 4)
Quarter: 2019Q2

REPORT INFORMATION
  Report Type: Spontaneous
  Country: CZ (occurrence: CZ)
  Receive Date: 20161026
  Receipt Date: 20190417
  Transmission Date: 20190711
  Serious: Yes (Life-Threatening, Hospitalization, Other)
  Sender: FDA-Public Use
  Company Number: CZ-BRISTOL-MYERS SQUIBB COMPANY-BMS-2016-085692

PATIENT
  Age: 70 Year
  Sex: Female

DRUGS (1)
  1. METFORMIN HYDROCHLORIDE. [Suspect]
     Active Substance: METFORMIN HYDROCHLORIDE
     Indication: DIABETES MELLITUS
     Dosage: UNK
     Route: 065

REACTIONS (8)
  - Myocardial infarction [Recovering/Resolving]
  - Acute kidney injury [Recovered/Resolved]
  - Shock [Unknown]
  - Lactic acidosis [Recovered/Resolved]
  - Continuous haemodiafiltration [Unknown]
  - Metabolic acidosis [Recovering/Resolving]
  - Hyperlactacidaemia [Recovered/Resolved]
  - Systemic infection [Recovering/Resolving]

NARRATIVE: CASE EVENT DATE: 2015
